FAERS Safety Report 7830183-2 (Version None)
Quarter: 2011Q4

REPORT INFORMATION
  Report Type: 
  Country: None (occurrence: None)
  Receive Date: 20111021
  Receipt Date: 20111013
  Transmission Date: 20120403
  Serious: Yes (Hospitalization)
  Sender: FDA-Public Use
  Company Number: PHHY2011FR86949

PATIENT
  Sex: Female

DRUGS (12)
  1. AN UNSPECIFIED STATIN [Concomitant]
  2. ESOMEPRAZOLE SODIUM [Concomitant]
  3. LEVOTHYROXINE SODIUM [Concomitant]
     Dosage: 1 DF,
  4. METHIMAZOLE [Suspect]
     Dates: start: 20110601, end: 20110901
  5. FELODIPINE [Concomitant]
     Indication: HYPERTENSION
  6. NOCTAMID [Concomitant]
  7. METHIMAZOLE [Suspect]
     Indication: HYPERTHYROIDISM
     Dosage: 20 MG,
     Dates: start: 20110201, end: 20110901
  8. GLUCOPHAGE [Concomitant]
     Indication: DIABETES MELLITUS
  9. RASILEZ [Suspect]
     Indication: HYPERTENSION
     Dosage: 300 MG, DAILY
     Dates: start: 20110801, end: 20110901
  10. ESIDRIX [Concomitant]
     Indication: HYPERTENSION
  11. DIAMICRON [Concomitant]
     Indication: DIABETES MELLITUS
  12. ATORVASTATIN CALCIUM [Concomitant]
     Dosage: 1 DF,

REACTIONS (3)
  - BONE MARROW FAILURE [None]
  - PANCYTOPENIA [None]
  - HAEMATOMA [None]
